FAERS Safety Report 9225352 (Version 2)
Quarter: 2013Q3

REPORT INFORMATION
  Report Type: Report from Study
  Country: CA (occurrence: CA)
  Receive Date: 20130411
  Receipt Date: 20130923
  Transmission Date: 20140515
  Serious: Yes (Other)
  Sender: FDA-Public Use
  Company Number: CA-JNJFOC-20130402981

PATIENT
  Sex: Male
  Weight: 129 kg

DRUGS (6)
  1. REMICADE [Suspect]
     Indication: CROHN^S DISEASE
     Dosage: 600 MG
     Route: 042
     Dates: start: 20090909, end: 20130128
  2. PURINETHOL [Concomitant]
     Route: 048
  3. AVAPRO [Concomitant]
     Route: 048
  4. PREDNISONE [Concomitant]
     Route: 048
  5. ATENOLOL [Concomitant]
     Route: 048
  6. CALCIUM [Concomitant]
     Route: 048

REACTIONS (1)
  - Neoplasm [Unknown]
